FAERS Safety Report 19178035 (Version 6)
Quarter: 2022Q2

REPORT INFORMATION
  Report Type: Spontaneous
  Country: US (occurrence: US)
  Receive Date: 20210426
  Receipt Date: 20220503
  Transmission Date: 20220721
  Serious: Yes (Hospitalization, Disabling)
  Sender: FDA-Public Use
  Company Number: US-CELLTRION INC.-2020US028611

PATIENT

DRUGS (6)
  1. INFLECTRA [Suspect]
     Active Substance: INFLIXIMAB-DYYB
     Indication: Rheumatoid arthritis
     Dosage: 5MG/KG BY INFUSION ONCE A MONTH
     Route: 065
     Dates: start: 20201130
  2. INFLECTRA [Suspect]
     Active Substance: INFLIXIMAB-DYYB
     Indication: Multiple sclerosis
     Dosage: UNK
     Route: 065
     Dates: start: 202101
  3. INFLECTRA [Suspect]
     Active Substance: INFLIXIMAB-DYYB
     Indication: Nervous system disorder
     Dosage: (LAST INFUSION) 5MG/KG BY INFUSION ONCE A MONTH
     Route: 065
     Dates: start: 20210301
  4. INFLECTRA [Suspect]
     Active Substance: INFLIXIMAB-DYYB
     Dosage: UNK
     Route: 065
  5. INFLECTRA [Suspect]
     Active Substance: INFLIXIMAB-DYYB
     Dosage: UNK
     Route: 065
  6. INFLECTRA [Suspect]
     Active Substance: INFLIXIMAB-DYYB
     Dosage: UNK, INTRAVENOUS INFUSION EVERY 4 WEEKS (8 MG/KG EVERY 4 WEEKS)
     Route: 042

REACTIONS (11)
  - Hospitalisation [Unknown]
  - Condition aggravated [Unknown]
  - Treatment delayed [Unknown]
  - Feeling abnormal [Unknown]
  - Product availability issue [Unknown]
  - Off label use [Unknown]
  - Off label use [Unknown]
  - Overdose [Unknown]
  - Product dose omission issue [Unknown]
  - Circumstance or information capable of leading to medication error [Unknown]
  - Therapy interrupted [Unknown]

NARRATIVE: CASE EVENT DATE: 20220316
